FAERS Safety Report 5036956-6 (Version None)
Quarter: 2006Q2

REPORT INFORMATION
  Report Type: 
  Country: None (occurrence: None)
  Receive Date: 20060628
  Receipt Date: 20060614
  Transmission Date: 20061013
  Serious: Yes (Life-Threatening)
  Sender: FDA-Public Use
  Company Number: AT-AVENTIS-200616389GDDC

PATIENT
  Age: 54 Year
  Sex: Female
  Weight: 46.5 kg

DRUGS (2)
  1. APIDRA [Suspect]
     Indication: DIABETES MELLITUS
     Route: 058
  2. OPTIPEN (INSULIN PUMP) [Suspect]

REACTIONS (4)
  - DEPRESSED LEVEL OF CONSCIOUSNESS [None]
  - HYPOGLYCAEMIC COMA [None]
  - LOSS OF CONSCIOUSNESS [None]
  - SUICIDE ATTEMPT [None]
